FAERS Safety Report 5048087-X (Version None)
Quarter: 2006Q3

REPORT INFORMATION
  Report Type: 
  Country: None (occurrence: None)
  Receive Date: 20060705
  Receipt Date: 20060614
  Transmission Date: 20061208
  Serious: Yes (Other)
  Sender: FDA-Public Use
  Company Number: US200606003302

PATIENT
  Sex: Female

DRUGS (8)
  1. HUMULIN N [Suspect]
     Indication: DIABETES MELLITUS
  2. COUMADIN [Concomitant]
  3. TOPRAL (SULTOPRIDE) [Concomitant]
  4. ASPIRIN [Concomitant]
  5. DIOVAN [Concomitant]
  6. SYNTHROID [Concomitant]
  7. CARDIZEM [Concomitant]
  8. ZESTRIL [Concomitant]

REACTIONS (3)
  - CEREBROVASCULAR ACCIDENT [None]
  - INCREASED TENDENCY TO BRUISE [None]
  - INJECTION SITE BRUISING [None]
